FAERS Safety Report 13670136 (Version 4)
Quarter: 2017Q3

REPORT INFORMATION
  Report Type: Report from Study
  Country: JP (occurrence: JP)
  Receive Date: 20170620
  Receipt Date: 20170816
  Transmission Date: 20171127
  Serious: Yes (Death, Hospitalization, Other)
  Sender: FDA-Public Use
  Company Number: JP-BAYER-2016-195964

PATIENT
  Age: 75 Year
  Sex: Male
  Weight: 59.3 kg

DRUGS (33)
  1. BLINDED RIVAROXABAN [Suspect]
     Active Substance: RIVAROXABAN
     Indication: THROMBOSIS PROPHYLAXIS
     Dosage: 2.5 MG, BID
     Route: 048
     Dates: start: 20161005, end: 20161007
  2. LOXOPROFEN SODIUM [Concomitant]
     Active Substance: LOXOPROFEN SODIUM
     Indication: PAIN
     Dosage: DAILY DOSE 60 MG
     Route: 048
     Dates: start: 20161005, end: 20161006
  3. HIRUDOID [Concomitant]
     Active Substance: GLYCOSAMINOGLYCANS
     Indication: RASH
     Dosage: 0.3 %, A COATING MEDICINE
     Dates: start: 20161124, end: 20161202
  4. LENOGRASTIM [Concomitant]
     Active Substance: LENOGRASTIM
     Indication: BONE MARROW FAILURE
     Dosage: DAILY DOSE 100 ?L
     Route: 042
     Dates: start: 20161125, end: 20161201
  5. BLINDED RIVAROXABAN [Suspect]
     Active Substance: RIVAROXABAN
     Indication: PERIPHERAL ARTERIAL OCCLUSIVE DISEASE
  6. ACETYLSALICYLIC ACID({=100 MG) [Suspect]
     Active Substance: ASPIRIN
     Indication: THROMBOSIS PROPHYLAXIS
     Dosage: 100 MG, QD
     Route: 048
     Dates: start: 20161006, end: 20170412
  7. LOXOPROFEN SODIUM [Concomitant]
     Active Substance: LOXOPROFEN SODIUM
     Indication: PAIN
     Dosage: DAILY DOSE 100 MG
     Route: 062
     Dates: start: 20161008, end: 20161206
  8. ACETAMINOPHEN. [Concomitant]
     Active Substance: ACETAMINOPHEN
     Indication: PAIN
     Dosage: 400 MG, PRN
     Dates: start: 20161109, end: 20161202
  9. BLINDED RIVAROXABAN [Suspect]
     Active Substance: RIVAROXABAN
     Indication: PERIPHERAL REVASCULARISATION
  10. ACETYLSALICYLIC ACID({=100 MG) [Suspect]
     Active Substance: ASPIRIN
     Indication: PERIPHERAL ARTERIAL OCCLUSIVE DISEASE
  11. FENOFIBRATE. [Concomitant]
     Active Substance: FENOFIBRATE
     Indication: DYSLIPIDAEMIA
     Dosage: DAILY DOSE 80 MG
     Route: 048
     Dates: end: 20161213
  12. SITAGLIPTIN [Concomitant]
     Active Substance: SITAGLIPTIN
     Indication: TYPE 2 DIABETES MELLITUS
     Dosage: DAILY DOSE 50 MG
     Route: 048
     Dates: end: 20161214
  13. KETOPROFEN. [Concomitant]
     Active Substance: KETOPROFEN
     Indication: PAIN
     Dosage: 20 MG, PRN
     Route: 062
     Dates: start: 20161111, end: 20161201
  14. LUBIPROSTONE [Concomitant]
     Active Substance: LUBIPROSTONE
     Indication: CONSTIPATION
     Dosage: 24 ?G, PRN
     Route: 048
     Dates: start: 20161115, end: 20161214
  15. CEFMENOXIME HYDROCHLORIDE [Concomitant]
     Active Substance: CEFMENOXIME HYDROCHLORIDE
     Indication: BONE MARROW FAILURE
     Dosage: DAILY DOSE 1 MG
     Route: 042
     Dates: start: 20161125, end: 20161201
  16. CLOPIDOGREL SULFATE [Concomitant]
     Active Substance: CLOPIDOGREL BISULFATE
     Indication: PERIPHERAL ARTERIAL OCCLUSIVE DISEASE
     Dosage: DAILY DOSE 75 MG
     Route: 048
     Dates: start: 20161006, end: 20170412
  17. SENNOSIDE [Concomitant]
     Active Substance: SENNOSIDES
     Indication: CONSTIPATION
     Dosage: DAILY DOSE 12 MG
     Route: 048
     Dates: start: 20161011, end: 20161014
  18. SENNOSIDE [Concomitant]
     Active Substance: SENNOSIDES
     Indication: CONSTIPATION
     Dosage: 24 MG, QD
     Route: 048
     Dates: start: 20161221, end: 20170501
  19. RACOL [Concomitant]
     Active Substance: AMINO ACIDS\DEXTROSE\ELECTROLYTES NOS
     Indication: NUTRITIONAL SUPPLEMENTATION
     Dosage: DAILY DOSE 200 ML
     Route: 048
     Dates: start: 20161007, end: 20161009
  20. SENNOSIDE [Concomitant]
     Active Substance: SENNOSIDES
     Indication: CONSTIPATION
     Dosage: 24 MG, PRN
     Dates: start: 20161128, end: 20161202
  21. ACETYLSALICYLIC ACID({=100 MG) [Suspect]
     Active Substance: ASPIRIN
     Indication: PERIPHERAL REVASCULARISATION
  22. AMLODIPINE BESILATE [Concomitant]
     Active Substance: AMLODIPINE BESYLATE
     Indication: HYPERTENSION
     Dosage: DAILY DOSE 5 MG
     Route: 048
     Dates: end: 20170511
  23. OLMESARTAN MEDOXOMIL. [Concomitant]
     Active Substance: OLMESARTAN MEDOXOMIL
     Indication: HYPERTENSION
     Dosage: DAILY DOSE 20 MG
     Route: 048
     Dates: end: 20161109
  24. BAY 59-7939 RIVAROXABAN VS PLACEBO [Concomitant]
     Indication: PERIPHERAL ARTERIAL OCCLUSIVE DISEASE
     Dosage: DAILY DOSE 100 MG
     Route: 048
     Dates: start: 20161008, end: 20161014
  25. ESOMEPRAZOLE MAGNESIUM. [Concomitant]
     Active Substance: ESOMEPRAZOLE MAGNESIUM
     Indication: GASTRITIS PROPHYLAXIS
  26. OLOPATADINE HYDROCHLORIDE. [Concomitant]
     Active Substance: OLOPATADINE HYDROCHLORIDE
     Indication: RASH
     Dosage: 10 MG, QD
     Route: 048
     Dates: start: 20161124, end: 20161127
  27. LOXOPROFEN SODIUM [Concomitant]
     Active Substance: LOXOPROFEN SODIUM
     Indication: PAIN
     Dosage: 100 MG, PRN
     Route: 062
     Dates: start: 20161201, end: 20161206
  28. SENNOSIDE [Concomitant]
     Active Substance: SENNOSIDES
     Indication: CONSTIPATION
     Dosage: 24 MG, PRN
     Route: 048
     Dates: start: 20161109, end: 20161114
  29. SITAGLIPTIN PHOSPHATE MONOHYDRATE [Concomitant]
     Active Substance: SITAGLIPTIN PHOSPHATE
     Indication: TYPE 2 DIABETES MELLITUS
  30. ESOMEPRAZOLE MAGNESIUM. [Concomitant]
     Active Substance: ESOMEPRAZOLE MAGNESIUM
     Indication: PROPHYLAXIS AGAINST GASTROINTESTINAL ULCER
     Dosage: DAILY DOSE 20 MG
     Route: 048
     Dates: end: 20170517
  31. ITOPRIDE HYDROCHLORIDE [Concomitant]
     Active Substance: ITOPRIDE HYDROCHLORIDE
     Indication: GASTROINTESTINAL MOTILITY DISORDER
     Dosage: DAILY DOSE 100 MG
     Route: 048
     Dates: end: 20161109
  32. ACETAMINOPHEN. [Concomitant]
     Active Substance: ACETAMINOPHEN
     Indication: PAIN
     Dosage: DAILY DOSE 200 MG
     Route: 048
     Dates: start: 20161005, end: 20161009
  33. ENSURE [MINERALS NOS,VITAMINS NOS] [Concomitant]
     Indication: FEEDING DISORDER
     Dosage: 750 ML, QD
     Route: 048
     Dates: start: 20161214, end: 20170404

REACTIONS (2)
  - Gastric cancer [Fatal]
  - Upper gastrointestinal haemorrhage [Not Recovered/Not Resolved]

NARRATIVE: CASE EVENT DATE: 20161007
